FAERS Safety Report 14685130 (Version 2)
Quarter: 2018Q3

REPORT INFORMATION
  Report Type: Spontaneous
  Country: US (occurrence: US)
  Receive Date: 20180327
  Receipt Date: 20180724
  Transmission Date: 20181010
  Serious: Yes (Other)
  Sender: FDA-Public Use
  Company Number: US-PFIZER INC-2018124489

PATIENT
  Age: 23 Year
  Sex: Female

DRUGS (3)
  1. VIMPAT [Concomitant]
     Active Substance: LACOSAMIDE
     Indication: SEIZURE
     Dosage: UNK
     Dates: start: 201612
  2. DEPO?PROVERA [Suspect]
     Active Substance: MEDROXYPROGESTERONE ACETATE
     Indication: CONTRACEPTION
     Dosage: UNK (EVERY 3 MONTHS)
     Dates: start: 2016
  3. LORAZEPAM. [Concomitant]
     Active Substance: LORAZEPAM
     Indication: FACIAL SPASM
     Dosage: 1 MG, AS REQUIRED
     Dates: start: 201612

REACTIONS (3)
  - Pain [Not Recovered/Not Resolved]
  - Product administered at inappropriate site [Recovered/Resolved]
  - Neuritis [Recovered/Resolved]
